FAERS Safety Report 8312111-9 (Version None)
Quarter: 2012Q2

REPORT INFORMATION
  Report Type: 
  Country: None (occurrence: None)
  Receive Date: 20120425
  Receipt Date: 20110808
  Transmission Date: 20120825
  Serious: Yes (Other)
  Sender: FDA-Public Use
  Company Number: US-TEVA-US010427

PATIENT
  Sex: Female
  Weight: 64 kg

DRUGS (6)
  1. PROTONIX [Concomitant]
  2. PROVIGIL [Suspect]
     Indication: FATIGUE
     Dosage: 200 MILLIGRAM;
     Route: 048
     Dates: start: 20021001
  3. DEPAKOTE [Concomitant]
  4. FLEXERIL [Concomitant]
  5. PROVIGIL [Suspect]
     Indication: SOMNOLENCE
     Dosage: 400 MILLIGRAM;
     Route: 048
  6. TRAZODONE HCL [Concomitant]

REACTIONS (3)
  - MENSTRUAL DISORDER [None]
  - MATERNAL EXPOSURE DURING PREGNANCY [None]
  - ABORTION SPONTANEOUS [None]
